FAERS Safety Report 8811771 (Version 1)
Quarter: 2012Q4

REPORT INFORMATION
  Report Type: 
  Country: US (occurrence: US)
  Receive Date: 20120927
  Receipt Date: 20120927
  Transmission Date: 20130627
  Serious: Yes (Other)
  Sender: FDA-Public Use
  Company Number: US-ASTRAZENECA-2012SE72641

PATIENT
  Age: 677 Month
  Sex: Male
  Weight: 79.4 kg

DRUGS (5)
  1. NEXIUM [Suspect]
     Indication: GASTROOESOPHAGEAL REFLUX DISEASE
     Dosage: frequency BID
     Route: 048
     Dates: start: 2012
  2. PRILOSEC [Suspect]
     Indication: GASTROOESOPHAGEAL REFLUX DISEASE
     Route: 048
     Dates: start: 1987
  3. PRILOSEC [Suspect]
     Indication: GASTROOESOPHAGEAL REFLUX DISEASE
     Route: 048
     Dates: start: 201209
  4. OTC VITAMINS [Concomitant]
  5. BABY ASPIRIN [Concomitant]

REACTIONS (5)
  - Oesophageal adenocarcinoma [Unknown]
  - Weight fluctuation [Unknown]
  - Dyspnoea [Unknown]
  - Off label use [Unknown]
  - Drug ineffective [Unknown]
